FAERS Safety Report 10250306 (Version 1)
Quarter: 2014Q2

REPORT INFORMATION
  Report Type: Report from Study
  Country: CA (occurrence: CA)
  Receive Date: 20140620
  Receipt Date: 20140620
  Transmission Date: 20141212
  Serious: Yes (Other)
  Sender: FDA-Public Use
  Company Number: CA-JNJFOC-20140610517

PATIENT
  Age: 51 Year
  Sex: Male

DRUGS (1)
  1. REMICADE [Suspect]
     Indication: CROHN^S DISEASE
     Route: 042
     Dates: start: 20140613, end: 20140613

REACTIONS (5)
  - Infusion related reaction [Unknown]
  - Palpitations [Unknown]
  - Erythema [Unknown]
  - Malaise [Unknown]
  - Dyspnoea [Unknown]
